FAERS Safety Report 5627002-1 (Version None)
Quarter: 2008Q1

REPORT INFORMATION
  Report Type: 
  Country: None (occurrence: None)
  Receive Date: 20080122
  Receipt Date: 20071016
  Transmission Date: 20080703
  Serious: Yes (Hospitalization)
  Sender: FDA-Public Use
  Company Number: PHEH2007US12760

PATIENT
  Age: 59 Year
  Sex: Female

DRUGS (8)
  1. EXFORGE [Suspect]
     Indication: HYPERTENSION
     Dosage: 5MG AMLO/80MG VALS
     Dates: start: 20070821, end: 20070825
  2. SYNTHROID [Concomitant]
  3. PREMARIN [Concomitant]
  4. COZAAR [Concomitant]
  5. GLUCOPHAGE [Concomitant]
  6. GLYBURIDE [Concomitant]
  7. HYDROCODONE (HYDROCODONE) [Concomitant]
  8. ROBAXIN [Concomitant]

REACTIONS (6)
  - ASTHENIA [None]
  - DIZZINESS [None]
  - DRUG INEFFECTIVE [None]
  - HYPERTENSION [None]
  - RENAL IMPAIRMENT [None]
  - SWELLING FACE [None]
